FAERS Safety Report 9355854 (Version 1)
Quarter: 2013Q2

REPORT INFORMATION
  Report Type: Spontaneous
  Country: GB (occurrence: None)
  Receive Date: 20130614
  Receipt Date: 20130614
  Transmission Date: 20140414
  Serious: Yes (Hospitalization, Other)
  Sender: FDA-Public Use
  Company Number: GER/UKI/13/0029946

PATIENT
  Age: 64 Year
  Sex: Female

DRUGS (4)
  1. ZOLEDRONIC ACID (ZOLEDRONIC ACID) [Suspect]
     Indication: OFF LABEL USE
     Route: 042
  2. ZOLEDRONIC ACID (ZOLEDRONIC ACID) [Suspect]
     Indication: PROPHYLAXIS
     Route: 042
  3. PAMIDRONIC ACID [Suspect]
     Indication: OFF LABEL USE
     Route: 042
  4. PAMIDRONIC ACID [Suspect]
     Indication: PROPHYLAXIS
     Route: 042

REACTIONS (2)
  - Off label use [None]
  - Atypical femur fracture [None]
